FAERS Safety Report 14633767 (Version 1)
Quarter: 2018Q1

REPORT INFORMATION
  Report Type: Report from Study
  Country: FR (occurrence: FR)
  Receive Date: 20180314
  Receipt Date: 20180314
  Transmission Date: 20180509
  Serious: Yes (Other)
  Sender: FDA-Public Use
  Company Number: FR-SUN PHARMACEUTICAL INDUSTRIES LTD-2018RR-166104

PATIENT
  Age: 13 Year
  Sex: Female

DRUGS (18)
  1. ARIPIPRAZOLE. [Suspect]
     Active Substance: ARIPIPRAZOLE
     Indication: AUTISM SPECTRUM DISORDER
     Dosage: UNK
     Route: 065
  2. RISPERIDONE. [Suspect]
     Active Substance: RISPERIDONE
     Indication: OPPOSITIONAL DEFIANT DISORDER
  3. AMISULPRIDE [Suspect]
     Active Substance: AMISULPRIDE
     Indication: OPPOSITIONAL DEFIANT DISORDER
  4. PROPERICIAZINE [Suspect]
     Active Substance: PERICIAZINE
     Indication: OPPOSITIONAL DEFIANT DISORDER
  5. LITHIUM. [Suspect]
     Active Substance: LITHIUM
     Indication: OPPOSITIONAL DEFIANT DISORDER
  6. PROPERICIAZINE [Suspect]
     Active Substance: PERICIAZINE
     Indication: AUTISM SPECTRUM DISORDER
     Dosage: UNK
     Route: 065
  7. CLOZAPINE. [Suspect]
     Active Substance: CLOZAPINE
     Indication: OPPOSITIONAL DEFIANT DISORDER
  8. RISPERIDONE. [Suspect]
     Active Substance: RISPERIDONE
     Indication: AUTISM SPECTRUM DISORDER
     Dosage: UNK
     Route: 065
  9. SERTRALINE [Suspect]
     Active Substance: SERTRALINE HYDROCHLORIDE
     Indication: OPPOSITIONAL DEFIANT DISORDER
  10. CYAMEMAZINE [Suspect]
     Active Substance: CYAMEMAZINE
     Indication: AUTISM SPECTRUM DISORDER
     Dosage: UNK
     Route: 065
  11. CYAMEMAZINE [Suspect]
     Active Substance: CYAMEMAZINE
     Indication: OPPOSITIONAL DEFIANT DISORDER
  12. AMISULPRIDE [Suspect]
     Active Substance: AMISULPRIDE
     Indication: AUTISM SPECTRUM DISORDER
     Dosage: UNK
     Route: 065
  13. LITHIUM. [Suspect]
     Active Substance: LITHIUM
     Indication: AUTISM SPECTRUM DISORDER
     Dosage: UNK
     Route: 065
  14. ARIPIPRAZOLE. [Suspect]
     Active Substance: ARIPIPRAZOLE
     Indication: OPPOSITIONAL DEFIANT DISORDER
  15. PIMOZIDE. [Suspect]
     Active Substance: PIMOZIDE
     Indication: AUTISM SPECTRUM DISORDER
     Dosage: UNK
     Route: 065
  16. PIMOZIDE. [Suspect]
     Active Substance: PIMOZIDE
     Indication: OPPOSITIONAL DEFIANT DISORDER
  17. SERTRALINE [Suspect]
     Active Substance: SERTRALINE HYDROCHLORIDE
     Indication: AUTISM SPECTRUM DISORDER
     Dosage: UNK
     Route: 065
  18. CLOZAPINE. [Suspect]
     Active Substance: CLOZAPINE
     Indication: AUTISM SPECTRUM DISORDER
     Dosage: UNK
     Route: 065

REACTIONS (1)
  - Treatment failure [Unknown]
